FAERS Safety Report 23830548 (Version 1)
Quarter: 2024Q2

REPORT INFORMATION
  Report Type: Spontaneous
  Country: CN (occurrence: CN)
  Receive Date: 20240508
  Receipt Date: 20240508
  Transmission Date: 20240716
  Serious: Yes (Hospitalization, Other)
  Sender: FDA-Public Use
  Company Number: CN-HBP-2024CN030725

PATIENT
  Age: 74 Year
  Sex: Female

DRUGS (1)
  1. AKYNZEO (NETUPITANT\PALONOSETRON) [Suspect]
     Active Substance: NETUPITANT\PALONOSETRON
     Indication: Prophylaxis of nausea and vomiting
     Dosage: 0.300 GRAM, 1 DOSE/TIME, QD
     Route: 048
     Dates: start: 20240411, end: 20240411

REACTIONS (1)
  - Impaired gastric emptying [Recovering/Resolving]

NARRATIVE: CASE EVENT DATE: 20240414
